FAERS Safety Report 8001852-9 (Version None)
Quarter: 2011Q4

REPORT INFORMATION
  Report Type: 
  Country: None (occurrence: None)
  Receive Date: 20111222
  Receipt Date: 20111222
  Transmission Date: 20120403
  Serious: Yes (Other)
  Sender: FDA-Public Use
  Company Number: DE-AMGEN-DEUSP2011068335

PATIENT
  Age: 70 Year
  Sex: Male

DRUGS (1)
  1. NPLATE [Suspect]
     Indication: IDIOPATHIC THROMBOCYTOPENIC PURPURA
     Dosage: 150 MUG, Q3WK

REACTIONS (5)
  - ECCHYMOSIS [None]
  - PLATELET COUNT DECREASED [None]
  - PETECHIAE [None]
  - EPISTAXIS [None]
  - THERAPEUTIC RESPONSE DECREASED [None]
